FAERS Safety Report 16194412 (Version 1)
Quarter: 2019Q2

REPORT INFORMATION
  Report Type: Spontaneous
  Country: US (occurrence: US)
  Receive Date: 20190414
  Receipt Date: 20190414
  Transmission Date: 20190711
  Serious: No
  Sender: FDA-Public Use
  Company Number: US-TEVA-2019-US-1035039

PATIENT
  Sex: Male

DRUGS (1)
  1. AZITHROMYCIN ANHYDROUS. [Suspect]
     Active Substance: AZITHROMYCIN ANHYDROUS
     Indication: THROAT IRRITATION
     Route: 065

REACTIONS (8)
  - Impulsive behaviour [Unknown]
  - Restlessness [Unknown]
  - Mood swings [Unknown]
  - Product taste abnormal [Unknown]
  - Drug ineffective [Unknown]
  - Psychomotor hyperactivity [Unknown]
  - Cognitive disorder [Unknown]
  - Irritability [Unknown]
